FAERS Safety Report 4333136-4 (Version None)
Quarter: 2004Q2

REPORT INFORMATION
  Report Type: 
  Country: None (occurrence: None)
  Receive Date: 20040406
  Receipt Date: 20040317
  Transmission Date: 20050107
  Serious: Yes (Hospitalization)
  Sender: FDA-Public Use
  Company Number: PHHO2004CA04157

PATIENT
  Age: 50 Year
  Sex: Female

DRUGS (5)
  1. CLOZARIL [Suspect]
     Indication: SCHIZOPHRENIA
     Dosage: UNSPECIFIED
     Route: 048
     Dates: start: 20030311, end: 20040317
  2. PANTOLOC [Concomitant]
  3. TOPAMAX [Concomitant]
  4. FOLIC ACID [Concomitant]
  5. MOTILIUM [Concomitant]

REACTIONS (2)
  - ANAEMIA [None]
  - PANCYTOPENIA [None]
